FAERS Safety Report 7056376-2 (Version None)
Quarter: 2010Q4

REPORT INFORMATION
  Report Type: 
  Country: None (occurrence: None)
  Receive Date: 20101021
  Receipt Date: 20100921
  Transmission Date: 20110411
  Serious: Yes (Other)
  Sender: FDA-Public Use
  Company Number: PHHY2010BR66328

PATIENT
  Sex: Female

DRUGS (3)
  1. VALSARTAN, AMLODIPINE [Suspect]
     Dosage: 5/160
     Dates: start: 20040331
  2. SOTALOL [Suspect]
     Indication: HYPERTENSION
     Dosage: 160 MG/DAY
  3. METOPROLOL SUCCINATE [Concomitant]
     Dosage: 50

REACTIONS (8)
  - ASTHENIA [None]
  - BRADYCARDIA [None]
  - CARDIAC FAILURE CONGESTIVE [None]
  - CHEST PAIN [None]
  - DIZZINESS [None]
  - FATIGUE [None]
  - HYPOTENSION [None]
  - PULMONARY CONGESTION [None]
